FAERS Safety Report 8518528 (Version 3)
Quarter: 2012Q4

REPORT INFORMATION
  Report Type: 
  Country: US (occurrence: US)
  Receive Date: 20120417
  Receipt Date: 20120925
  Transmission Date: 20130627
  Serious: No
  Sender: FDA-Public Use
  Company Number: US-ASTRAZENECA-2011SE61697

PATIENT
  Age: 81 Year
  Sex: Female

DRUGS (1)
  1. NEXIUM [Suspect]
     Route: 048

REACTIONS (6)
  - Gastrooesophageal reflux disease [Unknown]
  - Burning sensation [Unknown]
  - Pharyngeal disorder [Unknown]
  - Dyspepsia [Unknown]
  - Malaise [Unknown]
  - Drug dose omission [Unknown]
